FAERS Safety Report 5915067-9 (Version None)
Quarter: 2008Q4

REPORT INFORMATION
  Report Type: 
  Country: None (occurrence: None)
  Receive Date: 20081010
  Receipt Date: 20081006
  Transmission Date: 20090506
  Serious: Yes (Other)
  Sender: FDA-Public Use
  Company Number: A0750636A

PATIENT
  Age: 61 Year
  Sex: Female

DRUGS (6)
  1. AVANDIA [Suspect]
     Dosage: 4MG PER DAY
     Route: 048
     Dates: start: 20050501, end: 20070101
  2. GLIMEPIRIDE [Suspect]
     Dosage: 4MG TWICE PER DAY
     Dates: start: 20050501, end: 20070101
  3. TOPAMAX [Concomitant]
  4. XANAX [Concomitant]
  5. AMBIEN [Concomitant]
  6. CPAP [Concomitant]

REACTIONS (2)
  - HYPOGLYCAEMIA [None]
  - PARALYSIS [None]
